FAERS Safety Report 4714260-0 (Version None)
Quarter: 2005Q2

REPORT INFORMATION
  Report Type: 
  Country: None (occurrence: None)
  Receive Date: 20050630
  Receipt Date: 20041104
  Transmission Date: 20051028
  Serious: Yes (Hospitalization, Other)
  Sender: FDA-Public Use
  Company Number: USA020921569

PATIENT
  Age: 72 Year
  Sex: Female
  Weight: 64 kg

DRUGS (1)
  1. HUMALOG [Suspect]
     Indication: DIABETES MELLITUS
     Dosage: 35 U/D
     Dates: start: 20020627

REACTIONS (5)
  - BLOOD GLUCOSE DECREASED [None]
  - CARDIAC DISORDER [None]
  - CATARACT OPERATION [None]
  - CONVULSION [None]
  - PNEUMONIA [None]
